FAERS Safety Report 5629699-9 (Version None)
Quarter: 2008Q1

REPORT INFORMATION
  Report Type: 
  Country: None (occurrence: None)
  Receive Date: 20080214
  Receipt Date: 20080131
  Transmission Date: 20080703
  Serious: Yes (Hospitalization, Other)
  Sender: FDA-Public Use
  Company Number: 2007BI025919

PATIENT
  Age: 49 Year
  Sex: Female

DRUGS (6)
  1. AVONEX [Suspect]
     Indication: MULTIPLE SCLEROSIS
     Dosage: 30 UG; QW; IM
     Route: 030
     Dates: start: 19990721
  2. ATENOLOL [Concomitant]
  3. DIOVAN [Concomitant]
  4. CYMBALTA [Concomitant]
  5. LEXAPRO [Concomitant]
  6. JANUVIA [Concomitant]

REACTIONS (10)
  - ARTHRALGIA [None]
  - BLOOD POTASSIUM DECREASED [None]
  - EXOSTOSIS [None]
  - HYPERTENSION [None]
  - INTRACRANIAL ANEURYSM [None]
  - MIGRAINE [None]
  - NAUSEA [None]
  - SPINAL COLUMN STENOSIS [None]
  - SPINAL OSTEOARTHRITIS [None]
  - TRANSIENT ISCHAEMIC ATTACK [None]
